FAERS Safety Report 7365216-3 (Version None)
Quarter: 2011Q1

REPORT INFORMATION
  Report Type: 
  Country: None (occurrence: None)
  Receive Date: 20110321
  Receipt Date: 20110316
  Transmission Date: 20110831
  Serious: Yes (Hospitalization)
  Sender: FDA-Public Use
  Company Number: US-BRISTOL-MYERS SQUIBB COMPANY-15373533

PATIENT
  Age: 65 Year
  Sex: Female
  Weight: 72 kg

DRUGS (12)
  1. PACLITAXEL [Suspect]
     Indication: NON-SMALL CELL LUNG CANCER
     Route: 042
     Dates: start: 20100621
  2. CARDIZEM CD [Concomitant]
     Indication: BLOOD PRESSURE
  3. AMITRIPTYLINE [Concomitant]
     Indication: DEPRESSION
  4. STALEVO 100 [Concomitant]
     Indication: PARKINSON'S DISEASE
  5. METFORMIN [Concomitant]
     Indication: DIABETES MELLITUS
  6. CITALOPRAM [Concomitant]
     Indication: DEPRESSION
  7. LISINOPRIL [Concomitant]
     Indication: BLOOD PRESSURE
  8. ROPINIROLE [Concomitant]
     Indication: POLLAKIURIA
  9. CARBOPLATIN [Suspect]
     Indication: NON-SMALL CELL LUNG CANCER
     Dosage: 1DF=AUC6
     Route: 042
     Dates: start: 20100621
  10. LOVASTATIN [Concomitant]
     Indication: BLOOD CHOLESTEROL
  11. ASPIRIN [Concomitant]
     Indication: PROPHYLAXIS
  12. BEVACIZUMAB [Suspect]
     Indication: NON-SMALL CELL LUNG CANCER
     Route: 042
     Dates: start: 20100621

REACTIONS (4)
  - CONFUSIONAL STATE [None]
  - DEHYDRATION [None]
  - NAUSEA [None]
  - VOMITING [None]
